FAERS Safety Report 9511568 (Version 1)
Quarter: 2013Q1

REPORT INFORMATION
  Report Type: Spontaneous
  Country: US (occurrence: None)
  Receive Date: 20130305
  Receipt Date: 20130305
  Transmission Date: 20140127
  Serious: Yes (Hospitalization)
  Sender: FDA-Public Use
  Company Number: 163-21880-12052026

PATIENT
  Age: 85 Year
  Sex: Male

DRUGS (10)
  1. REVLIMID (LENALIDOMIDE) (CAPSULES) [Suspect]
     Indication: MYELODYSPLASTIC SYNDROME
     Route: 048
     Dates: start: 20120301, end: 20120320
  2. GABAPENTIN (GABAPENTIN) [Concomitant]
  3. LEVOTHROID (LEVOTHYROXINE SODIUM) [Concomitant]
  4. WARFARIN (WARFARIN) [Concomitant]
  5. LOSARTAN (LOSARTAN) [Concomitant]
  6. METOPROLOL (METOPROLOL) [Concomitant]
  7. TARTRATE [Concomitant]
  8. CITALOPRAM (CITALOPRAM) [Concomitant]
  9. PROCRIT [Concomitant]
  10. PRAVASTATIN (PRAVASTATIN) [Concomitant]

REACTIONS (2)
  - Febrile neutropenia [None]
  - Pancytopenia [None]
